FAERS Safety Report 10556297 (Version 2)
Quarter: 2014Q4

REPORT INFORMATION
  Report Type: Report from Study
  Country: US (occurrence: US)
  Receive Date: 20141031
  Receipt Date: 20141210
  Transmission Date: 20150529
  Serious: Yes (Hospitalization)
  Sender: FDA-Public Use
  Company Number: US-BIOGENIDEC-2014BI112055

PATIENT
  Age: 50 Year
  Sex: Female

DRUGS (1)
  1. TYSABRI [Suspect]
     Active Substance: NATALIZUMAB
     Indication: MULTIPLE SCLEROSIS
     Route: 042
     Dates: start: 20121128

REACTIONS (4)
  - Hysterectomy [Recovered/Resolved]
  - VIIth nerve paralysis [Not Recovered/Not Resolved]
  - Herpes zoster [Not Recovered/Not Resolved]
  - Procedural complication [Recovered/Resolved]

NARRATIVE: CASE EVENT DATE: 20140410
